FAERS Safety Report 5398949-9 (Version None)
Quarter: 2007Q3

REPORT INFORMATION
  Report Type: 
  Country: None (occurrence: None)
  Receive Date: 20070724
  Receipt Date: 20070724
  Transmission Date: 20080115
  Serious: Yes (Hospitalization)
  Sender: FDA-Public Use
  Company Number: None

PATIENT
  Age: 81 Year
  Sex: Male

DRUGS (6)
  1. MOBIC [Suspect]
  2. ASPIRIN [Suspect]
  3. ZOCOR [Concomitant]
  4. NADOLOL [Concomitant]
  5. ARICEPT [Concomitant]
  6. ZOLOFT [Concomitant]

REACTIONS (2)
  - DUODENAL ULCER [None]
  - UPPER GASTROINTESTINAL HAEMORRHAGE [None]
